FAERS Safety Report 18274237 (Version 1)
Quarter: 2020Q3

REPORT INFORMATION
  Report Type: Spontaneous
  Country: US (occurrence: US)
  Receive Date: 20200916
  Receipt Date: 20200916
  Transmission Date: 20201103
  Serious: Yes (Other)
  Sender: FDA-Public Use
  Company Number: US-TEVA-2020-US-1828353

PATIENT
  Age: 58 Year
  Sex: Male

DRUGS (10)
  1. DOK [Concomitant]
     Active Substance: DOCUSATE SODIUM
  2. OTEZLA [Concomitant]
     Active Substance: APREMILAST
  3. RYBELSUS [Concomitant]
     Active Substance: SEMAGLUTIDE
  4. APAP/CODIENE [Concomitant]
  5. REPATHA [Concomitant]
     Active Substance: EVOLOCUMAB
  6. EZETIMBE [Concomitant]
     Active Substance: EZETIMIBE
  7. DIAZEPAM. [Concomitant]
     Active Substance: DIAZEPAM
  8. TRAMADOL. [Concomitant]
     Active Substance: TRAMADOL
  9. PROMETHAZINE [Concomitant]
     Active Substance: PROMETHAZINE HYDROCHLORIDE
  10. COPAXONE [Suspect]
     Active Substance: GLATIRAMER ACETATE
     Indication: PSORIASIS
     Route: 058
     Dates: start: 20180524

REACTIONS (2)
  - Arterial repair [Unknown]
  - Surgery [Unknown]

NARRATIVE: CASE EVENT DATE: 20200722
